FAERS Safety Report 6282493-0 (Version None)
Quarter: 2009Q3

REPORT INFORMATION
  Report Type: 
  Country: None (occurrence: None)
  Receive Date: 20090721
  Receipt Date: 20090721
  Transmission Date: 20100115
  Serious: Yes (Other)
  Sender: FDA-Public Use
  Company Number: None

PATIENT
  Age: 34 Year
  Sex: Female
  Weight: 72.5755 kg

DRUGS (1)
  1. MIRENA [Suspect]
     Dosage: IMPLANTED IUD EVERY 5 YEARS VAG
     Route: 067
     Dates: start: 20070205, end: 20090101

REACTIONS (9)
  - ABDOMINAL PAIN LOWER [None]
  - ACNE [None]
  - BACK PAIN [None]
  - IRRITABILITY [None]
  - MEMORY IMPAIRMENT [None]
  - MENORRHAGIA [None]
  - MIGRAINE [None]
  - VERTIGO [None]
  - WEIGHT INCREASED [None]
